FAERS Safety Report 23358373 (Version 1)
Quarter: 2024Q1

REPORT INFORMATION
  Report Type: Spontaneous
  Country: FR (occurrence: FR)
  Receive Date: 20240102
  Receipt Date: 20240102
  Transmission Date: 20240410
  Serious: Yes (Other)
  Sender: FDA-Public Use
  Company Number: None

PATIENT
  Age: 64 Year
  Sex: Female
  Weight: 91 kg

DRUGS (4)
  1. ZOPICLONE [Suspect]
     Active Substance: ZOPICLONE
     Indication: Product used for unknown indication
     Dosage: 1 TOTAL (DOSE NOT SPECIFIED)
     Route: 048
     Dates: start: 20231202, end: 20231202
  2. ACETAMINOPHEN [Suspect]
     Active Substance: ACETAMINOPHEN
     Indication: Product used for unknown indication
     Dosage: 24 GRAM, 1 TOTAL
     Route: 048
     Dates: start: 20231202, end: 20231202
  3. BROMAZEPAM [Suspect]
     Active Substance: BROMAZEPAM
     Indication: Product used for unknown indication
     Dosage: 1 TOTAL (DOSE NOT SPECIFIED)
     Route: 048
     Dates: start: 20231202, end: 20231202
  4. LEVOTHYROXINE [Suspect]
     Active Substance: LEVOTHYROXINE
     Indication: Product used for unknown indication
     Dosage: 1 TOTAL (DOSE NOT SPECIFIED)
     Route: 048
     Dates: start: 20231202, end: 20231202

REACTIONS (4)
  - Analgesic drug level increased [Recovered/Resolved]
  - Toxicity to various agents [Recovered/Resolved]
  - Psychomotor skills impaired [Recovered/Resolved]
  - Sedation [Recovered/Resolved]

NARRATIVE: CASE EVENT DATE: 20231202
